FAERS Safety Report 6795157-1 (Version None)
Quarter: 2010Q2

REPORT INFORMATION
  Report Type: 
  Country: None (occurrence: None)
  Receive Date: 20100625
  Receipt Date: 20100625
  Transmission Date: 20101027
  Serious: Yes (Hospitalization)
  Sender: FDA-Public Use
  Company Number: PHHO2009JP01436

PATIENT
  Sex: Female
  Weight: 39 kg

DRUGS (9)
  1. AFINITOR [Suspect]
     Indication: PANCREATIC NEUROENDOCRINE TUMOUR
     Dosage: 10 MG DAILY
     Route: 048
     Dates: start: 20081121, end: 20090123
  2. AFINITOR [Suspect]
     Dosage: 10 MG DAILY
     Route: 048
     Dates: start: 20090206
  3. MEILAX [Concomitant]
     Indication: INSOMNIA
  4. TAKEPRON [Concomitant]
     Indication: GASTRIC ULCER
  5. GRANDAXIN [Concomitant]
     Indication: INSOMNIA
  6. MAGLAX [Concomitant]
     Indication: CONSTIPATION
  7. MERISLON [Concomitant]
     Indication: VERTIGO
  8. MUCOSTA [Concomitant]
     Indication: GASTRIC ULCER
  9. KETOPROFEN [Concomitant]
     Dosage: UNK
     Dates: start: 20081010

REACTIONS (3)
  - CHEST X-RAY ABNORMAL [None]
  - COUGH [None]
  - PNEUMONITIS [None]
